FAERS Safety Report 4675299-7 (Version None)
Quarter: 2005Q2

REPORT INFORMATION
  Report Type: 
  Country: None (occurrence: None)
  Receive Date: 20050525
  Receipt Date: 20050512
  Transmission Date: 20051028
  Serious: Yes (Death)
  Sender: FDA-Public Use
  Company Number: 2005042624

PATIENT
  Age: 71 Year
  Sex: Male

DRUGS (7)
  1. IRINOTECAN HCL [Suspect]
     Indication: COLORECTAL CANCER
     Dosage: SEE IMAGE, INTRAVENOUS
     Route: 042
     Dates: start: 20041203, end: 20041217
  2. IRINOTECAN HCL [Suspect]
     Indication: COLORECTAL CANCER
     Dosage: SEE IMAGE, INTRAVENOUS
     Route: 042
     Dates: start: 20050107, end: 20050204
  3. FURTULON (DOXIFLURIDINE) [Suspect]
     Indication: COLORECTAL CANCER
     Dosage: 400 MG, ORAL
     Route: 048
     Dates: start: 20030725, end: 20050212
  4. COLONEL  (POLYCARBOPHIL CALCIUM) [Concomitant]
  5. HERBAL PREPARATION (HERBAL PREPARATION) [Concomitant]
  6. ZOLPIDEM TARTRATE [Concomitant]
  7. MAGNESIUM OXIDE (MAGNESIUM OXIDE) [Concomitant]

REACTIONS (5)
  - HAEMOGLOBIN DECREASED [None]
  - INTERSTITIAL LUNG DISEASE [None]
  - MALIGNANT PLEURAL EFFUSION [None]
  - THERAPY NON-RESPONDER [None]
  - THROMBOCYTOPENIA [None]
